FAERS Safety Report 8911991 (Version 1)
Quarter: 2012Q4

REPORT INFORMATION
  Report Type: Report from Study
  Country: BE (occurrence: BE)
  Receive Date: 20121116
  Receipt Date: 20121116
  Transmission Date: 20130627
  Serious: Yes (Hospitalization)
  Sender: FDA-Public Use
  Company Number: BE-TEVA-369645ISR

PATIENT
  Age: 6 Year
  Sex: Male
  Weight: 20.5 kg

DRUGS (11)
  1. VINCRISTINE [Suspect]
     Indication: NEOPLASM MALIGNANT
     Dosage: 1.5 mg/m2 Daily;
     Route: 042
     Dates: start: 20120414
  2. DOXORUBICIN [Suspect]
     Indication: NEOPLASM MALIGNANT
     Dosage: 30 mg/m2 Daily; Day 1 and 2
     Route: 042
     Dates: start: 20120414
  3. LIPOSOMAL DOXORUBICIN [Suspect]
     Indication: NEOPLASM MALIGNANT
     Dosage: 30 mg/m2 Daily; Day 1 and 2
     Route: 042
     Dates: start: 20120414
  4. BEVACIZUMAB [Suspect]
     Indication: NEOPLASM MALIGNANT
     Dosage: 7.5 mg/kg Daily; Day one
     Route: 042
     Dates: start: 20120414
  5. IFOSFAMIDE [Suspect]
     Indication: NEOPLASM MALIGNANT
     Dosage: 3 g/m x 2. day 1 and 2
     Route: 042
     Dates: start: 20120414
  6. DACTINOMYCIN [Suspect]
     Indication: NEOPLASM MALIGNANT
     Dosage: 1.5 mg/m2 Daily; day 1
     Route: 042
  7. DACTINOMYCIN [Suspect]
     Dosage: 1.2 Milligram Daily;
     Route: 042
     Dates: start: 20120615, end: 20120615
  8. ZOVIRAX [Concomitant]
     Dates: start: 20120506
  9. ZOVIRAX [Concomitant]
     Dates: start: 20120506
  10. EUSAPRIM FORTE [Concomitant]
     Dates: start: 20120506
  11. EUSAPRIM FORTE [Concomitant]
     Dates: start: 20120506

REACTIONS (1)
  - Anal fissure [Recovered/Resolved]
